FAERS Safety Report 12037504 (Version 1)
Quarter: 2016Q1

REPORT INFORMATION
  Report Type: Spontaneous
  Country: US (occurrence: None)
  Receive Date: 20160205
  Receipt Date: 20160205
  Transmission Date: 20160526
  Serious: Yes (Other)
  Sender: FDA-Public Use
  Company Number: None

PATIENT
  Age: 61 Year
  Sex: Female
  Weight: 81.65 kg

DRUGS (12)
  1. CITALOPRAM [Suspect]
     Active Substance: CITALOPRAM HYDROBROMIDE
     Indication: MUSCLE TIGHTNESS
     Route: 048
     Dates: start: 20151122, end: 20160203
  2. RETIN-A [Concomitant]
     Active Substance: TRETINOIN
  3. LOSARTAN. [Concomitant]
     Active Substance: LOSARTAN
  4. IBUPROPHEN [Concomitant]
     Active Substance: IBUPROFEN
  5. CITALOPRAM [Suspect]
     Active Substance: CITALOPRAM HYDROBROMIDE
     Indication: MUSCLE SPASMS
     Route: 048
     Dates: start: 20151122, end: 20160203
  6. LYSINE [Concomitant]
     Active Substance: LYSINE
  7. SOMA [Concomitant]
     Active Substance: CARISOPRODOL
  8. CITALOPRAM [Suspect]
     Active Substance: CITALOPRAM HYDROBROMIDE
     Indication: ANXIETY
     Route: 048
     Dates: start: 20151122, end: 20160203
  9. CITALOPRAM [Suspect]
     Active Substance: CITALOPRAM HYDROBROMIDE
     Indication: FEELING ABNORMAL
     Route: 048
     Dates: start: 20151122, end: 20160203
  10. MELATONIN [Concomitant]
     Active Substance: MELATONIN
  11. ALBUTEROL. [Concomitant]
     Active Substance: ALBUTEROL
  12. CELEXA [Concomitant]
     Active Substance: CITALOPRAM HYDROBROMIDE

REACTIONS (12)
  - Anxiety [None]
  - Chest pain [None]
  - Neck pain [None]
  - Product formulation issue [None]
  - Burning sensation [None]
  - Pain in jaw [None]
  - Product substitution issue [None]
  - Muscle spasms [None]
  - Muscle tightness [None]
  - Product quality issue [None]
  - Pain [None]
  - Back pain [None]

NARRATIVE: CASE EVENT DATE: 20160203
